FAERS Safety Report 20034627 (Version 1)
Quarter: 2021Q4

REPORT INFORMATION
  Report Type: Spontaneous
  Country: LB (occurrence: LB)
  Receive Date: 20211104
  Receipt Date: 20211104
  Transmission Date: 20220303
  Serious: Yes (Death)
  Sender: FDA-Public Use
  Company Number: LB-PFIZER INC-202101428731

PATIENT
  Age: 80 Year
  Sex: Female

DRUGS (1)
  1. SUTENT [Suspect]
     Active Substance: SUNITINIB MALATE
     Indication: Metastatic renal cell carcinoma
     Dosage: 12.5 MG, 4X /DAY
     Route: 048
     Dates: start: 202108, end: 202110

REACTIONS (2)
  - Hypoxia [Fatal]
  - Myocardial infarction [Fatal]
